FAERS Safety Report 9007349 (Version 2)
Quarter: 2013Q1

REPORT INFORMATION
  Report Type: Spontaneous
  Country: US (occurrence: US)
  Receive Date: 20130110
  Receipt Date: 20130114
  Transmission Date: 20140127
  Serious: Yes (Death)
  Sender: FDA-Public Use
  Company Number: US-PFIZER INC-2013007005

PATIENT
  Age: 29 Year
  Sex: Male
  Weight: 78.6 kg

DRUGS (2)
  1. LIDOCAINE HCL [Suspect]
  2. CAFFEINE [Suspect]

REACTIONS (8)
  - Cardiac arrest [Fatal]
  - Respiratory arrest [Fatal]
  - Hypoxic-ischaemic encephalopathy [Fatal]
  - Brain oedema [Fatal]
  - Pulmonary congestion [Fatal]
  - Pulmonary oedema [Fatal]
  - Myocardial infarction [Fatal]
  - Rhabdomyolysis [Fatal]
